FAERS Safety Report 17678862 (Version 2)
Quarter: 2020Q2

REPORT INFORMATION
  Report Type: Spontaneous
  Country: US (occurrence: US)
  Receive Date: 20200417
  Receipt Date: 20200508
  Transmission Date: 20200714
  Serious: Yes (Death, Hospitalization, Other)
  Sender: FDA-Public Use
  Company Number: US-009507513-2004USA005061

PATIENT
  Sex: Male
  Weight: 60.32 kg

DRUGS (5)
  1. JANUVIA [Suspect]
     Active Substance: SITAGLIPTIN PHOSPHATE
     Dosage: 50 MILLIGRAM, QD
     Route: 048
     Dates: start: 20180815, end: 201901
  2. ASPIRIN. [Concomitant]
     Active Substance: ASPIRIN
     Indication: PROPHYLAXIS
     Dosage: 81 MILLIGRAM
     Dates: start: 20150508, end: 202001
  3. CHOLECALCIFEROL [Concomitant]
     Active Substance: CHOLECALCIFEROL
     Indication: VITAMIN D DEFICIENCY
     Dosage: UNK
     Dates: start: 20150320, end: 2018
  4. BYETTA [Suspect]
     Active Substance: EXENATIDE
     Dosage: UNK
     Dates: start: 20150320, end: 20171004
  5. BYDUREON [Suspect]
     Active Substance: EXENATIDE
     Dosage: 2 MILLIGRAM, QW
     Dates: start: 20150320, end: 20171004

REACTIONS (30)
  - Pulmonary hilum mass [Unknown]
  - Aortic arteriosclerosis [Unknown]
  - Anxiety [Unknown]
  - Hypoaesthesia [Unknown]
  - Constipation [Unknown]
  - Inappropriate antidiuretic hormone secretion [Unknown]
  - Prostatomegaly [Unknown]
  - Testicular disorder [Unknown]
  - Sinus arrhythmia [Unknown]
  - Oesophagitis [Unknown]
  - Pancreatic carcinoma [Unknown]
  - Death [Fatal]
  - Hypogonadism [Unknown]
  - Hyponatraemia [Unknown]
  - Coeliac artery occlusion [Unknown]
  - Weight decreased [Unknown]
  - Ascites [Unknown]
  - Organic erectile dysfunction [Unknown]
  - Cervical radiculopathy [Unknown]
  - Platelet count decreased [Unknown]
  - Liver disorder [Unknown]
  - Hypertonic bladder [Unknown]
  - Mixed anxiety and depressive disorder [Unknown]
  - Drug hypersensitivity [Unknown]
  - Amylase decreased [Unknown]
  - Intestinal dilatation [Unknown]
  - Insomnia [Unknown]
  - Lower urinary tract symptoms [Unknown]
  - Asthenia [Unknown]
  - Hepatic cirrhosis [Unknown]

NARRATIVE: CASE EVENT DATE: 20190111
